FAERS Safety Report 11822190 (Version 1)
Quarter: 2015Q4

REPORT INFORMATION
  Report Type: Spontaneous
  Country: US (occurrence: US)
  Receive Date: 20151210
  Receipt Date: 20151210
  Transmission Date: 20160305
  Serious: No
  Sender: FDA-Public Use
  Company Number: US-JNJFOC-20150718624

PATIENT
  Age: 79 Year
  Sex: Female

DRUGS (1)
  1. IMBRUVICA [Suspect]
     Active Substance: IBRUTINIB
     Indication: CHRONIC LYMPHOCYTIC LEUKAEMIA
     Route: 048
     Dates: start: 20150505

REACTIONS (7)
  - Mouth haemorrhage [Not Recovered/Not Resolved]
  - Diarrhoea [Unknown]
  - Gastrooesophageal reflux disease [Unknown]
  - Eructation [Unknown]
  - Dyspepsia [Unknown]
  - Contusion [Not Recovered/Not Resolved]
  - Nail discolouration [Unknown]

NARRATIVE: CASE EVENT DATE: 2015
